FAERS Safety Report 8921886 (Version 1)
Quarter: 2012Q4

REPORT INFORMATION
  Report Type: 
  Country: US (occurrence: US)
  Receive Date: 20121121
  Receipt Date: 20121121
  Transmission Date: 20130627
  Serious: Yes (Hospitalization)
  Sender: FDA-Public Use
  Company Number: US-US-EMD SERONO, INC.-7177073

PATIENT
  Age: 65 None
  Sex: Female

DRUGS (5)
  1. REBIF [Suspect]
     Indication: PRODUCT USED FOR UNKNOWN INDICATION
     Route: 058
     Dates: start: 20050218
  2. REBIF [Suspect]
     Route: 058
  3. TEGRETOL [Concomitant]
     Indication: HYPERTENSION
  4. UNSPECIFIED MEDICATION [Concomitant]
     Indication: ARTHRITIS
  5. UNSPECIFIED MEDICATION [Concomitant]
     Indication: BURSITIS

REACTIONS (2)
  - Cellulitis [Not Recovered/Not Resolved]
  - Limb injury [Not Recovered/Not Resolved]
